FAERS Safety Report 8979922 (Version 4)
Quarter: 2013Q1

REPORT INFORMATION
  Report Type: Spontaneous
  Country: US (occurrence: US)
  Receive Date: 20121221
  Receipt Date: 20130228
  Transmission Date: 20140127
  Serious: Yes (Other)
  Sender: FDA-Public Use
  Company Number: US-JNJFOC-20121203912

PATIENT
  Sex: Female

DRUGS (4)
  1. TOPAMAX [Suspect]
     Indication: MIGRAINE
     Route: 048
  2. TYLENOL 3 [Suspect]
     Indication: HEADACHE
     Route: 048
  3. ZOFRAN [Suspect]
     Indication: NAUSEA
     Route: 048
  4. PRENATAL VITAMINS [Concomitant]
     Route: 065

REACTIONS (2)
  - Exposure during pregnancy [Recovered/Resolved]
  - Arrested labour [Recovered/Resolved]
